FAERS Safety Report 20384177 (Version 4)
Quarter: 2022Q1

REPORT INFORMATION
  Report Type: Report from Study
  Country: US (occurrence: US)
  Receive Date: 20220127
  Receipt Date: 20220307
  Transmission Date: 20220424
  Serious: Yes (Death, Life-Threatening, Hospitalization, Disabling, Other)
  Sender: FDA-Public Use
  Company Number: US-AMGEN INC.-USACT2022011760

PATIENT
  Age: 63 Year
  Sex: Male
  Weight: 71.7 kg

DRUGS (5)
  1. AMG-510 [Suspect]
     Active Substance: AMG-510
     Indication: Non-small cell lung cancer metastatic
     Dosage: UNK, (TOTAL DOSE 20160 MG)
     Route: 065
     Dates: start: 20211202, end: 20220112
  2. AMG-510 [Suspect]
     Active Substance: AMG-510
     Dosage: UNK (TOTAL DOSE 5760 MG)
     Route: 065
     Dates: start: 20220113, end: 20220118
  3. AMG-510 [Suspect]
     Active Substance: AMG-510
     Dosage: UNK, (TOTAL DOSE 17280 MG)
     Route: 065
     Dates: start: 20220203, end: 20220221
  4. GABAPENTIN [Suspect]
     Active Substance: GABAPENTIN
     Indication: Product used for unknown indication
     Route: 065
  5. METHIMAZOLE [Concomitant]
     Active Substance: METHIMAZOLE

REACTIONS (9)
  - Abdominal pain [Recovered/Resolved with Sequelae]
  - Leukopenia [Recovering/Resolving]
  - Non-small cell lung cancer [Fatal]
  - Hypoxia [Recovered/Resolved with Sequelae]
  - COVID-19 [Recovered/Resolved with Sequelae]
  - Cerebrovascular accident [Unknown]
  - Respiratory failure [Unknown]
  - Back pain [Unknown]
  - Dyspnoea [Unknown]

NARRATIVE: CASE EVENT DATE: 20220111
